FAERS Safety Report 7979480-0 (Version None)
Quarter: 2011Q4

REPORT INFORMATION
  Report Type: 
  Country: None (occurrence: None)
  Receive Date: 20111214
  Receipt Date: 20111212
  Transmission Date: 20120403
  Serious: Yes (Other)
  Sender: FDA-Public Use
  Company Number: PHHY2010DE41688

PATIENT
  Sex: Female

DRUGS (1)
  1. ZOLEDRONOC ACID [Suspect]
     Dosage: 5 MG, ONCE YEARLY
     Route: 042

REACTIONS (7)
  - DIABETES MELLITUS [None]
  - DIARRHOEA [None]
  - PYREXIA [None]
  - ASTHENIA [None]
  - DECREASED APPETITE [None]
  - CHILLS [None]
  - INFUSION RELATED REACTION [None]
